FAERS Safety Report 6112930-3 (Version None)
Quarter: 2009Q1

REPORT INFORMATION
  Report Type: 
  Country: None (occurrence: None)
  Receive Date: 20090312
  Receipt Date: 20090305
  Transmission Date: 20090719
  Serious: Yes (Hospitalization)
  Sender: FDA-Public Use
  Company Number: FR-AMGEN-UK283735

PATIENT
  Sex: Male

DRUGS (7)
  1. PANITUMUMAB [Suspect]
     Indication: SQUAMOUS CELL CARCINOMA
     Route: 042
     Dates: start: 20080408
  2. AVLOCARDYL [Concomitant]
  3. MOPRAL [Concomitant]
  4. NITRODERM [Concomitant]
  5. LEVEMIR [Concomitant]
  6. DURAGESIC-100 [Concomitant]
  7. NUTRITIONAL SUPPLEMENT [Concomitant]

REACTIONS (1)
  - FEBRILE BONE MARROW APLASIA [None]
